FAERS Safety Report 9988013 (Version 3)
Quarter: 2014Q2

REPORT INFORMATION
  Report Type: Spontaneous
  Country: US (occurrence: US)
  Receive Date: 20140307
  Receipt Date: 20140527
  Transmission Date: 20141212
  Serious: Yes (Congenital Anomaly, Other)
  Sender: FDA-Public Use
  Company Number: US-RB-064168-14

PATIENT
  Age: 0 Year
  Sex: Female

DRUGS (1)
  1. SUBOXONE TABLET [Suspect]
     Indication: DRUG DEPENDENCE
     Dosage: UNKNOWN DOSING DETAILS
     Route: 064
     Dates: start: 2012, end: 20121210

REACTIONS (5)
  - Foetal exposure during pregnancy [Recovered/Resolved]
  - Congenital malignant neoplasm [Recovering/Resolving]
  - Blindness unilateral [Not Recovered/Not Resolved]
  - Macular scar [Not Recovered/Not Resolved]
  - Ocular neoplasm [Not Recovered/Not Resolved]
